FAERS Safety Report 13545163 (Version 1)
Quarter: 2017Q2

REPORT INFORMATION
  Report Type: Spontaneous
  Country: US (occurrence: US)
  Receive Date: 20170515
  Receipt Date: 20170515
  Transmission Date: 20170830
  Serious: No
  Sender: FDA-Public Use
  Company Number: US-BAYER-2017-091368

PATIENT
  Sex: Female

DRUGS (1)
  1. MIRENA [Suspect]
     Active Substance: LEVONORGESTREL
     Indication: CONTRACEPTION
     Dosage: 20 MCG/24HR, CONT
     Route: 015

REACTIONS (10)
  - Weight loss poor [None]
  - Migraine [None]
  - Depressed mood [None]
  - Fatigue [None]
  - Irritability [None]
  - Weight increased [None]
  - Frustration tolerance decreased [None]
  - Obsessive thoughts [None]
  - Loss of personal independence in daily activities [None]
  - Fungal infection [None]
